FAERS Safety Report 15204406 (Version 1)
Quarter: 2018Q3

REPORT INFORMATION
  Report Type: Spontaneous
  Country: FR (occurrence: FR)
  Receive Date: 20180726
  Receipt Date: 20180726
  Transmission Date: 20181010
  Serious: Yes (Hospitalization)
  Sender: FDA-Public Use
  Company Number: FR-MYLANLABS-2018M1055155

PATIENT
  Age: 67 Year
  Sex: Female
  Weight: 90 kg

DRUGS (2)
  1. BUDESONIDE MYLAN [Suspect]
     Active Substance: BUDESONIDE
     Indication: ASTHMA
     Dosage: 0.5 MG, QD
     Route: 055
     Dates: start: 20180314, end: 20180314
  2. MUCOMYSTENDO [Suspect]
     Active Substance: ACETYLCYSTEINE
     Indication: ASTHMA
     Dosage: 1 G, QD
     Route: 055
     Dates: start: 20180314, end: 20180314

REACTIONS (1)
  - Bronchospasm [Recovered/Resolved with Sequelae]

NARRATIVE: CASE EVENT DATE: 20180314
